FAERS Safety Report 20884395 (Version 2)
Quarter: 2022Q2

REPORT INFORMATION
  Report Type: Spontaneous
  Country: US (occurrence: US)
  Receive Date: 20220527
  Receipt Date: 20220609
  Transmission Date: 20220721
  Serious: No
  Sender: FDA-Public Use
  Company Number: US-LUPIN PHARMACEUTICALS INC.-2022-07499

PATIENT
  Age: 78 Year
  Sex: Male

DRUGS (1)
  1. ALBUTEROL SULFATE [Suspect]
     Active Substance: ALBUTEROL SULFATE
     Indication: Chronic obstructive pulmonary disease
     Dosage: UNK, TAKES 2 PUFFS AT NIGHT AS NEEDED
     Dates: start: 20220420

REACTIONS (3)
  - Wrong technique in device usage process [Unknown]
  - Product packaging quantity issue [Unknown]
  - No adverse event [Unknown]
